FAERS Safety Report 9185563 (Version 1)
Quarter: 2012Q4

REPORT INFORMATION
  Report Type: 
  Country: US (occurrence: US)
  Receive Date: 20121101
  Receipt Date: 20121101
  Transmission Date: 20130627
  Serious: Yes (Hospitalization)
  Sender: FDA-Public Use
  Company Number: US-MYLANLABS-2012S1021864

PATIENT
  Age: 54 Year
  Sex: Female

DRUGS (2)
  1. BISACODYL [Suspect]
     Indication: CONSTIPATION
     Dosage: 3 Tablets
     Route: 048
  2. ESTRADIOL [Suspect]
     Indication: HORMONE REPLACEMENT THERAPY
     Dosage: 0.5mg/day
     Route: 065

REACTIONS (1)
  - Colitis ischaemic [Recovered/Resolved]
